APPROVED DRUG PRODUCT: ROGAINE EXTRA STRENGTH (FOR MEN)
Active Ingredient: MINOXIDIL
Strength: 5%
Dosage Form/Route: SOLUTION;TOPICAL
Application: N020834 | Product #001
Applicant: KENVUE BRANDS LLC
Approved: Nov 14, 1997 | RLD: Yes | RS: Yes | Type: OTC